FAERS Safety Report 19393164 (Version 1)
Quarter: 2021Q2

REPORT INFORMATION
  Report Type: Spontaneous
  Country: US (occurrence: US)
  Receive Date: 20210608
  Receipt Date: 20210608
  Transmission Date: 20210717
  Serious: No
  Sender: FDA-Public Use
  Company Number: None

PATIENT
  Age: 93 Year
  Sex: Male
  Weight: 83.25 kg

DRUGS (1)
  1. HEPARIN [Suspect]
     Active Substance: HEPARIN SODIUM
     Indication: CATHETERISATION CARDIAC
     Dosage: ?          OTHER FREQUENCY:ONCE THEN REPEAT;?
     Route: 040
     Dates: start: 20210603, end: 20210603

REACTIONS (2)
  - Coagulation time shortened [None]
  - Therapeutic product ineffective [None]

NARRATIVE: CASE EVENT DATE: 20210603
